FAERS Safety Report 13118713 (Version 2)
Quarter: 2017Q2

REPORT INFORMATION
  Report Type: Spontaneous
  Country: AU (occurrence: AU)
  Receive Date: 20170116
  Receipt Date: 20170404
  Transmission Date: 20170830
  Serious: Yes (Hospitalization)
  Sender: FDA-Public Use
  Company Number: AU-UCBSA-2017001600

PATIENT
  Age: 3 Month
  Sex: Female

DRUGS (2)
  1. KEPPRA [Suspect]
     Active Substance: LEVETIRACETAM
     Dosage: 8 ML, 2X/DAY (BID), 8 ML (800 MG OF A 100 MG/ML SOLUTION)
  2. KEPPRA [Suspect]
     Active Substance: LEVETIRACETAM
     Indication: SEIZURE
     Dosage: 80 MG, 2X/DAY (BID)

REACTIONS (4)
  - Respiratory tract infection [Recovered/Resolved]
  - Overdose [Unknown]
  - Drug prescribing error [Unknown]
  - Off label use [Unknown]
